FAERS Safety Report 15604135 (Version 1)
Quarter: 2018Q4

REPORT INFORMATION
  Report Type: Report from Study
  Country: None (occurrence: EC)
  Receive Date: 20181110
  Receipt Date: 20181110
  Transmission Date: 20190205
  Serious: Yes (Other)
  Sender: FDA-Public Use
  Company Number: EC-ABBVIE-18K-047-2501834-00

PATIENT
  Age: 29 Year
  Sex: Female
  Weight: 86 kg

DRUGS (3)
  1. LORATADINE. [Concomitant]
     Active Substance: LORATADINE
     Indication: PRODUCT USED FOR UNKNOWN INDICATION
  2. FOLIC ACID. [Concomitant]
     Active Substance: FOLIC ACID
     Indication: PRODUCT USED FOR UNKNOWN INDICATION
  3. HUMIRA [Suspect]
     Active Substance: ADALIMUMAB
     Indication: RHEUMATOID ARTHRITIS
     Route: 058
     Dates: start: 20160926

REACTIONS (8)
  - Abortion induced [Unknown]
  - Limb injury [Recovering/Resolving]
  - Exposure during pregnancy [Unknown]
  - Breast pain [Recovering/Resolving]
  - Immunodeficiency [Recovering/Resolving]
  - Oral mucosal erythema [Recovering/Resolving]
  - Influenza [Recovering/Resolving]
  - Emotional disorder [Unknown]

NARRATIVE: CASE EVENT DATE: 2018
